FAERS Safety Report 4474802-X (Version None)
Quarter: 2004Q4

REPORT INFORMATION
  Report Type: 
  Country: None (occurrence: None)
  Receive Date: 20041012
  Receipt Date: 20040929
  Transmission Date: 20050328
  Serious: No
  Sender: FDA-Public Use
  Company Number: 2004UW20701

PATIENT
  Age: 40 Year
  Sex: Female

DRUGS (7)
  1. LOSEC [Suspect]
  2. DICLOFENAC [Suspect]
  3. BENZOCAINE [Suspect]
  4. TIROTRICINE [Suspect]
  5. DEXAMETHASONE [Suspect]
  6. FLIMETRAZEPAN [Suspect]
  7. ALCOHOL [Suspect]

REACTIONS (2)
  - ALCOHOL USE [None]
  - SUICIDE ATTEMPT [None]
